FAERS Safety Report 7597040-0 (Version None)
Quarter: 2011Q3

REPORT INFORMATION
  Report Type: 
  Country: None (occurrence: None)
  Receive Date: 20110708
  Receipt Date: 20110705
  Transmission Date: 20111222
  Serious: Yes (Hospitalization, Other)
  Sender: FDA-Public Use
  Company Number: GB-PFIZER INC-2011026760

PATIENT
  Age: 29 Year
  Sex: Female
  Weight: 52 kg

DRUGS (1)
  1. PHENYTOIN SODIUM [Suspect]
     Indication: STATUS EPILEPTICUS
     Dosage: 150:200
     Route: 048

REACTIONS (5)
  - FALL [None]
  - INJURY [None]
  - TOXICITY TO VARIOUS AGENTS [None]
  - ATAXIA [None]
  - MYOCLONIC EPILEPSY [None]
